FAERS Safety Report 4611917-7 (Version None)
Quarter: 2005Q2

REPORT INFORMATION
  Report Type: 
  Country: None (occurrence: None)
  Receive Date: 20050308
  Receipt Date: 20041214
  Transmission Date: 20051028
  Serious: Yes (Other)
  Sender: FDA-Public Use
  Company Number: 2004UW25432

PATIENT
  Age: 60 Year
  Sex: Male
  Weight: 87.996 kg

DRUGS (1)
  1. CRESTOR [Suspect]
     Indication: BLOOD CHOLESTEROL INCREASED
     Dosage: 10 MG PO
     Route: 048

REACTIONS (1)
  - HIGH DENSITY LIPOPROTEIN DECREASED [None]
